FAERS Safety Report 9630806 (Version 1)
Quarter: 2013Q4

REPORT INFORMATION
  Report Type: Spontaneous
  Country: US (occurrence: None)
  Receive Date: 20131016
  Receipt Date: 20131016
  Transmission Date: 20140711
  Serious: Yes (Hospitalization)
  Sender: FDA-Public Use
  Company Number: None

PATIENT
  Age: 66 Year
  Sex: Male
  Weight: 103.4 kg

DRUGS (1)
  1. SALICYLIC ACID [Suspect]
     Route: 061
     Dates: start: 20130811, end: 20130822

REACTIONS (11)
  - Rash [None]
  - Rash [None]
  - Pain in extremity [None]
  - Local swelling [None]
  - Application site vesicles [None]
  - Skin hypertrophy [None]
  - Application site reaction [None]
  - Rash maculo-papular [None]
  - Cellulitis [None]
  - Tenderness [None]
  - Erythema [None]
